FAERS Safety Report 5966288-0 (Version None)
Quarter: 2008Q4

REPORT INFORMATION
  Report Type: 
  Country: None (occurrence: None)
  Receive Date: 20081125
  Receipt Date: 20081114
  Transmission Date: 20090506
  Serious: No
  Sender: FDA-Public Use
  Company Number: US-ELI_LILLY_AND_COMPANY-US200808003952

PATIENT
  Age: 48 Year
  Sex: Female

DRUGS (8)
  1. CYMBALTA [Suspect]
     Indication: NEURALGIA
     Dosage: 30 MG, DAILY (1/D)
     Dates: start: 20050901, end: 20050101
  2. CYMBALTA [Suspect]
     Dosage: 60 MG, DAILY (1/D)
     Dates: start: 20050101, end: 20050101
  3. CYMBALTA [Suspect]
     Dosage: 90 MG, DAILY (1/D)
     Dates: start: 20051115, end: 20080801
  4. CYMBALTA [Suspect]
     Dosage: 60 MG, DAILY (1/D)
     Dates: start: 20080801
  5. METHADONE HCL [Concomitant]
     Indication: BACK PAIN
     Dosage: 20 MG, UNK
  6. MORPHINE [Concomitant]
     Dosage: 30 MG, AS NEEDED
  7. METHYLPHENIDATE - SLOW RELEASE [Concomitant]
     Indication: NARCOLEPSY
     Dosage: 20 MG, 3/D
  8. METHYLPHENIDATE HCL [Concomitant]
     Indication: NARCOLEPSY
     Dosage: 10 MG, 3/D

REACTIONS (3)
  - ALANINE AMINOTRANSFERASE INCREASED [None]
  - ASPARTATE AMINOTRANSFERASE INCREASED [None]
  - BLOOD ALKALINE PHOSPHATASE INCREASED [None]
